FAERS Safety Report 7494543-4 (Version None)
Quarter: 2011Q2

REPORT INFORMATION
  Report Type: 
  Country: None (occurrence: None)
  Receive Date: 20110520
  Receipt Date: 20110425
  Transmission Date: 20111010
  Serious: Yes (Other)
  Sender: FDA-Public Use
  Company Number: US-BAYER-201022921NA

PATIENT
  Age: 49 Year
  Sex: Female
  Weight: 65.76 kg

DRUGS (9)
  1. ADVIL LIQUI-GELS [Concomitant]
  2. ANTIBIOTICS [Concomitant]
  3. ZOMIG-ZMT [Concomitant]
     Dosage: 5 MG, UNK
     Dates: start: 20070101, end: 20100101
  4. PROVERA [Concomitant]
     Dosage: 10 MG, UNK
     Dates: start: 20080901
  5. PROVERA [Concomitant]
     Dosage: UNK
     Dates: start: 20080701
  6. LOVENOX [Concomitant]
     Dosage: 0.7 ML, BID
     Route: 058
     Dates: start: 20080901
  7. YAZ [Suspect]
     Dosage: UNK UNK, UNK
     Route: 048
     Dates: start: 20080807, end: 20080901
  8. CHLORZOXAZONE [Concomitant]
     Dosage: 500 MG, UNK
     Route: 048
     Dates: start: 20080827
  9. LOVENOX [Concomitant]
     Dosage: 100 MG/ML, UNK
     Route: 058
     Dates: start: 20080901

REACTIONS (6)
  - PARAESTHESIA [None]
  - HYPOAESTHESIA [None]
  - THROMBOSIS [None]
  - PAIN IN EXTREMITY [None]
  - OEDEMA PERIPHERAL [None]
  - DEEP VEIN THROMBOSIS [None]
